FAERS Safety Report 4623910-9 (Version None)
Quarter: 2005Q1

REPORT INFORMATION
  Report Type: 
  Country: None (occurrence: None)
  Receive Date: 20050331
  Receipt Date: 20050204
  Transmission Date: 20050727
  Serious: Yes (Death, Life-Threatening, Hospitalization)
  Sender: FDA-Public Use
  Company Number: GB-BRISTOL-MYERS SQUIBB COMPANY-12849592

PATIENT
  Age: 68 Year
  Sex: Female
  Weight: 41 kg

DRUGS (2)
  1. CISPLATIN [Suspect]
     Indication: ENDOMETRIAL CANCER
     Dosage: INITIAL DOSE: 12-NOV-2004
     Dates: start: 20050120, end: 20050120
  2. DOXORUBICIN HCL [Suspect]
     Indication: ENDOMETRIAL CANCER
     Dosage: INITIAL DOSE: 12-NOV-2004
     Dates: start: 20050120, end: 20050120

REACTIONS (5)
  - COMA [None]
  - ENDOMETRIAL CANCER METASTATIC [None]
  - LOSS OF CONSCIOUSNESS [None]
  - NEUTROPENIA [None]
  - SEPSIS [None]
